FAERS Safety Report 5375522-X (Version None)
Quarter: 2007Q2

REPORT INFORMATION
  Report Type: 
  Country: None (occurrence: None)
  Receive Date: 20070629
  Receipt Date: 20070615
  Transmission Date: 20071010
  Serious: Yes (Death, Hospitalization)
  Sender: FDA-Public Use
  Company Number: NZ-GENENTECH-243651

PATIENT
  Sex: Male
  Weight: 64.7 kg

DRUGS (4)
  1. BEVACIZUMAB [Suspect]
     Indication: COLORECTAL CANCER
     Dosage: 325 MG, Q2W
     Route: 042
     Dates: start: 20070403
  2. CAPECITABINE [Suspect]
     Indication: COLORECTAL CANCER
     Dosage: 4300 MG, QD
     Route: 048
     Dates: start: 20070403
  3. OXALIPLATIN [Suspect]
     Indication: COLORECTAL CANCER
     Dosage: 145 MG, Q2W
     Route: 042
     Dates: start: 20070403
  4. ASPIRIN [Concomitant]
     Indication: DRUG USE FOR UNKNOWN INDICATION
     Dates: start: 20011124

REACTIONS (1)
  - SEPSIS [None]
